FAERS Safety Report 8541717-7 (Version None)
Quarter: 2012Q3

REPORT INFORMATION
  Report Type: 
  Country: None (occurrence: None)
  Receive Date: 20120726
  Receipt Date: 20120723
  Transmission Date: 20120928
  Serious: Yes (Other)
  Sender: FDA-Public Use
  Company Number: CHPA2012US015518

PATIENT
  Age: 50 Year
  Sex: Male

DRUGS (3)
  1. NAPROXEN (ALEVE) [Concomitant]
     Indication: ARTHRITIS
  2. PREVACID 24 HR [Suspect]
     Dosage: 15 MG, QD
     Route: 048
     Dates: start: 20120716, end: 20120717
  3. PREVACID 24 HR [Suspect]
     Indication: DYSPEPSIA
     Dosage: 15 MG, ONCE/SINGLE
     Route: 048
     Dates: start: 20120218, end: 20120218

REACTIONS (11)
  - OFF LABEL USE [None]
  - BLEPHARITIS [None]
  - THERAPEUTIC RESPONSE UNEXPECTED [None]
  - BACK PAIN [None]
  - HEADACHE [None]
  - INCORRECT DRUG ADMINISTRATION DURATION [None]
  - DRY MOUTH [None]
  - DEHYDRATION [None]
  - NECK PAIN [None]
  - CHILLS [None]
  - NERVOUSNESS [None]
